FAERS Safety Report 4822916-4 (Version None)
Quarter: 2005Q4

REPORT INFORMATION
  Report Type: 
  Country: None (occurrence: None)
  Receive Date: 20051104
  Receipt Date: 20051025
  Transmission Date: 20060501
  Serious: Yes (Hospitalization, Other)
  Sender: FDA-Public Use
  Company Number: 2005148701

PATIENT
  Age: 42 Year
  Sex: Female

DRUGS (5)
  1. NEURONTIN [Suspect]
     Indication: CYSTITIS INTERSTITIAL
     Dosage: 2400 MG (800 MG, 3 IN 1 D), ORAL
     Route: 048
     Dates: start: 20030101, end: 20040401
  2. ZOLOFT [Concomitant]
  3. TENORMIN [Concomitant]
  4. ZANAFLEX [Concomitant]
  5. ESTRATEST [Concomitant]

REACTIONS (10)
  - ABDOMINAL PAIN UPPER [None]
  - ALOPECIA [None]
  - BLADDER OPERATION [None]
  - CLOSTRIDIAL INFECTION [None]
  - DEHYDRATION [None]
  - DIARRHOEA [None]
  - HAEMORRHOIDS [None]
  - IRRITABLE BOWEL SYNDROME [None]
  - POSTOPERATIVE WOUND INFECTION [None]
  - WEIGHT DECREASED [None]
